FAERS Safety Report 21583672 (Version 2)
Quarter: 2022Q4

REPORT INFORMATION
  Report Type: Report from Study
  Country: US (occurrence: US)
  Receive Date: 20221111
  Receipt Date: 20221123
  Transmission Date: 20230113
  Serious: No
  Sender: FDA-Public Use
  Company Number: US-ABBVIE-4196025

PATIENT
  Sex: Female

DRUGS (3)
  1. IMBRUVICA [Suspect]
     Active Substance: IBRUTINIB
     Indication: Chronic lymphocytic leukaemia
     Route: 048
     Dates: start: 20220903
  2. Oral Relief Spray [Concomitant]
     Indication: Product used for unknown indication
  3. Lidocaine Viscous HCl [Concomitant]
     Indication: Product used for unknown indication
     Dosage: MOUTH/THRO

REACTIONS (3)
  - Rash [Not Recovered/Not Resolved]
  - Pruritus [Unknown]
  - Influenza [Unknown]
